FAERS Safety Report 13695811 (Version 1)
Quarter: 2017Q2

REPORT INFORMATION
  Report Type: Spontaneous
  Country: DE (occurrence: DE)
  Receive Date: 20170627
  Receipt Date: 20170627
  Transmission Date: 20170830
  Serious: Yes (Other)
  Sender: FDA-Public Use
  Company Number: DE-MEDA-2017060048

PATIENT
  Age: 33 Year
  Sex: Female

DRUGS (10)
  1. LOSARTAN 25 MG [Suspect]
     Active Substance: LOSARTAN
     Indication: RENAL HYPERTENSION
     Route: 048
  2. PREDNISOLON [Concomitant]
     Active Substance: PREDNISOLONE
     Dosage: DOSAGE INCREASE FROM 4 TO 12 MG/D
     Dates: start: 20160701, end: 20170104
  3. ASS 100 [Concomitant]
     Active Substance: ASPIRIN
     Route: 048
     Dates: start: 20161229, end: 20170104
  4. VIGANTOLETTEN 1000 IU [Concomitant]
     Indication: VITAMIN D DEFICIENCY
     Route: 048
     Dates: start: 20160701, end: 20170104
  5. AZATHIOPRINE. [Suspect]
     Active Substance: AZATHIOPRINE
     Indication: ANTI-NEUTROPHIL CYTOPLASMIC ANTIBODY POSITIVE VASCULITIS
     Dosage: 50-0-100 MG/D
     Route: 048
     Dates: start: 20160701, end: 20170104
  6. VITAMIN B12 [Concomitant]
     Active Substance: CYANOCOBALAMIN
     Indication: VITAMIN B12 DEFICIENCY
     Route: 030
     Dates: start: 20160701, end: 20161128
  7. TORASEMIDE 5 MG [Suspect]
     Active Substance: TORSEMIDE
     Indication: OEDEMA
     Route: 048
     Dates: start: 20160701, end: 20161128
  8. CARVEDILOL. [Suspect]
     Active Substance: CARVEDILOL
     Indication: RENAL HYPERTENSION
     Dosage: 50 MG/D REDUCED TO 25 MG/D IN WEEK 26 5/7
     Route: 048
     Dates: start: 20160701, end: 20170104
  9. CELESTAN [Concomitant]
     Active Substance: BETAMETHASONE
     Indication: MATERNAL THERAPY TO ENHANCE FOETAL LUNG MATURITY
     Route: 030
     Dates: start: 20161229, end: 20161230
  10. PANTOPRAZOLE SODIUM. [Concomitant]
     Active Substance: PANTOPRAZOLE SODIUM
     Indication: PROPHYLAXIS AGAINST GASTROINTESTINAL ULCER
     Route: 048
     Dates: start: 20160701, end: 20170104

REACTIONS (6)
  - Caesarean section [None]
  - Congenital anomaly in offspring [None]
  - Maternal exposure during pregnancy [None]
  - Exposure during pregnancy [Recovered/Resolved]
  - Premature delivery [None]
  - Oligohydramnios [Recovered/Resolved]
